FAERS Safety Report 21426307 (Version 1)
Quarter: 2022Q4

REPORT INFORMATION
  Report Type: Spontaneous
  Country: US (occurrence: US)
  Receive Date: 20221008
  Receipt Date: 20221008
  Transmission Date: 20230112
  Serious: No
  Sender: FDA-Public Use
  Company Number: US-PURDUE-USA-2020-0155179

PATIENT
  Sex: Female

DRUGS (1)
  1. BUTRANS [Suspect]
     Active Substance: BUPRENORPHINE
     Indication: Back pain
     Dosage: 15 MCG, WEEKLY
     Route: 062
     Dates: start: 2019

REACTIONS (9)
  - Crying [Unknown]
  - Product dose omission issue [Unknown]
  - Pain [Unknown]
  - Feeling abnormal [Unknown]
  - Therapeutic product effect decreased [Unknown]
  - Product formulation issue [Unknown]
  - Product adhesion issue [Unknown]
  - Product packaging quantity issue [Unknown]
  - Product physical issue [Unknown]
